FAERS Safety Report 4572242-6 (Version None)
Quarter: 2005Q1

REPORT INFORMATION
  Report Type: 
  Country: None (occurrence: None)
  Receive Date: 20050203
  Receipt Date: 20050119
  Transmission Date: 20050727
  Serious: No
  Sender: FDA-Public Use
  Company Number: A01200406241

PATIENT
  Age: 69 Year
  Sex: Female

DRUGS (4)
  1. PLAVIX [Suspect]
     Dosage: 75 MG QD ; ORAL
     Route: 048
     Dates: start: 20041105
  2. SOTALOL HCL [Concomitant]
  3. CRESTOR [Concomitant]
  4. PANTOPRAZOLE SODIUM [Concomitant]

REACTIONS (7)
  - AMNESIA [None]
  - DIZZINESS [None]
  - FACIAL PALSY [None]
  - PALPITATIONS [None]
  - PARAESTHESIA [None]
  - SPEECH DISORDER [None]
  - VERTIGO [None]
